FAERS Safety Report 9174016 (Version 6)
Quarter: 2014Q1

REPORT INFORMATION
  Report Type: Report from Study
  Country: FR (occurrence: None)
  Receive Date: 20130315
  Receipt Date: 20140212
  Transmission Date: 20141002
  Serious: Yes (Hospitalization)
  Sender: FDA-Public Use
  Company Number: SYM-2013-01583

PATIENT
  Age: 82 Year
  Sex: Male

DRUGS (15)
  1. 5-FU [Suspect]
     Indication: COLORECTAL CANCER METASTATIC
     Route: 040
     Dates: start: 20130118, end: 20130118
  2. AFLIBERCEPT [Suspect]
     Indication: COLORECTAL CANCER METASTATIC
     Route: 042
     Dates: start: 20130118, end: 20130118
  3. IRINOTECAN [Suspect]
     Indication: COLORECTAL CANCER METASTATIC
     Route: 042
     Dates: start: 20130118, end: 20130118
  4. LEUCOVORIN [Suspect]
     Indication: COLORECTAL CANCER METASTATIC
     Route: 042
     Dates: start: 20130118, end: 20130118
  5. POTASSIUM CHLORIDE [Concomitant]
  6. CALCIUM CHANNEL BLOCKERS (CALCIUM CHANNEL BLOCKERS) [Concomitant]
  7. TRIATEC (RAMIPRIL)(RAMIPRIL) [Concomitant]
  8. JOSIR (TAMSULOSIN HYDROCHLORIDE)(TAMSULOSIN HYDROCHLORIDE) [Concomitant]
  9. HEPARIN GROUP (HEPARIN GROUP) [Concomitant]
  10. INIPOMP (PANTOPRAZOLE SODIUM SESQUIHYDRATE)(PANTOPRAZOLE SODIUM SESQUIHYDRATE) [Concomitant]
  11. ATHYMIL (MIANSERIN HYDROCHLORIDE)(MIANSERIN HYDROCHLORIDE) [Concomitant]
  12. ANTIBIOTICS (ANTIBIOTICS) [Concomitant]
  13. EMEND (APREPITANT) (APREPITANT) [Concomitant]
  14. ZOPHREN (ONDANSETRON HYDROCHLORIDE) (ONDANSETRON HYDROCHLORIDE) [Concomitant]
  15. OMEPRAZOLE (OMEPRAZOLE) (OMEPRAZOLE) [Concomitant]

REACTIONS (15)
  - General physical health deterioration [None]
  - Pulmonary embolism [None]
  - Asthenia [None]
  - Balance disorder [None]
  - Diarrhoea [None]
  - Pneumonia [None]
  - Hypertension [None]
  - Abdominal pain upper [None]
  - Hypoxia [None]
  - Hypercapnia [None]
  - Decreased appetite [None]
  - Malnutrition [None]
  - Haemoglobin decreased [None]
  - Blood sodium decreased [None]
  - Sinus tachycardia [None]
